FAERS Safety Report 16725982 (Version 2)
Quarter: 2019Q4

REPORT INFORMATION
  Report Type: Report from Study
  Country: JP (occurrence: JP)
  Receive Date: 20190821
  Receipt Date: 20191003
  Transmission Date: 20200122
  Serious: Yes (Hospitalization)
  Sender: FDA-Public Use
  Company Number: JP-ELI_LILLY_AND_COMPANY-JP201907011973

PATIENT
  Age: 65 Year
  Sex: Female
  Weight: 51 kg

DRUGS (14)
  1. VOLTAREN [Concomitant]
     Active Substance: DICLOFENAC SODIUM
     Indication: RHEUMATOID ARTHRITIS
     Dosage: 25 MG, DAILY
  2. LIMETHASON [DEXAMETHASONE SODIUM PHOSPHATE] [Concomitant]
     Indication: RHEUMATOID ARTHRITIS
     Dosage: 2.5 MG, OTHER
  3. TAKECAB [Concomitant]
     Active Substance: VONOPRAZAN FUMURATE
     Indication: GASTROOESOPHAGEAL REFLUX DISEASE
  4. BARICITINIB [Suspect]
     Active Substance: BARICITINIB
     Indication: RHEUMATOID ARTHRITIS
     Dosage: 2 MG, DAILY
     Route: 048
     Dates: start: 20180627, end: 20190717
  5. NEOISCOTIN [Concomitant]
     Active Substance: METHANIAZIDE
     Indication: PROPHYLAXIS
  6. LULICON [Concomitant]
     Active Substance: LULICONAZOLE
     Indication: DERMATOPHYTOSIS OF NAIL
  7. LIDOMEX [Concomitant]
     Active Substance: PREDNISOLONE VALERATE ACETATE
     Indication: ECZEMA
  8. DALACIN T [Concomitant]
     Active Substance: CLINDAMYCIN PHOSPHATE
     Indication: SMALLPOX
  9. CHONDROITIN SULFATE SODIUM [Concomitant]
     Active Substance: CHONDROITIN SULFATE (CHICKEN)
     Indication: RHEUMATOID ARTHRITIS
     Dosage: 200 MG, OTHER
  10. PYDOXAL [Concomitant]
     Active Substance: PYRIDOXAL
     Indication: PROPHYLAXIS
  11. PREDNISOLONE. [Concomitant]
     Active Substance: PREDNISOLONE
     Indication: RHEUMATOID ARTHRITIS
     Dosage: 5 MG, DAILY
  12. AMLODIPINE [Concomitant]
     Active Substance: AMLODIPINE BESYLATE
     Indication: HYPERTENSION
  13. ALLEGRA [Concomitant]
     Active Substance: FEXOFENADINE HYDROCHLORIDE
     Indication: RHINITIS ALLERGIC
  14. ADALAT [Concomitant]
     Active Substance: NIFEDIPINE
     Indication: HYPERTENSION

REACTIONS (1)
  - Small cell lung cancer [Not Recovered/Not Resolved]

NARRATIVE: CASE EVENT DATE: 20190717
